FAERS Safety Report 20006455 (Version 2)
Quarter: 2021Q4

REPORT INFORMATION
  Report Type: Spontaneous
  Country: US (occurrence: US)
  Receive Date: 20211028
  Receipt Date: 20211119
  Transmission Date: 20220303
  Serious: Yes (Death, Life-Threatening, Hospitalization)
  Sender: FDA-Public Use
  Company Number: US-DRREDDYS-SPO/USA/21/0143012

PATIENT
  Age: 86 Year
  Sex: Male

DRUGS (2)
  1. PROPOFOL [Suspect]
     Active Substance: PROPOFOL
     Indication: Sedation
  2. PROPOFOL [Suspect]
     Active Substance: PROPOFOL

REACTIONS (4)
  - Acute kidney injury [Fatal]
  - Lactic acidosis [Fatal]
  - Rhabdomyolysis [Fatal]
  - Propofol infusion syndrome [Fatal]
